FAERS Safety Report 10210787 (Version 2)
Quarter: 2014Q2

REPORT INFORMATION
  Report Type: Spontaneous
  Country: US (occurrence: US)
  Receive Date: 20140602
  Receipt Date: 20140605
  Transmission Date: 20141212
  Serious: Yes (Death, Hospitalization, Other)
  Sender: FDA-Public Use
  Company Number: US-JNJFOC-20140517596

PATIENT
  Sex: Male
  Weight: 59 kg

DRUGS (9)
  1. XARELTO [Suspect]
     Indication: CEREBROVASCULAR ACCIDENT PROPHYLAXIS
     Route: 048
  2. XARELTO [Suspect]
     Indication: ATRIAL FIBRILLATION
     Route: 048
  3. ASPIRIN [Suspect]
     Indication: PRODUCT USED FOR UNKNOWN INDICATION
     Route: 065
  4. EXCEDRIN EXTRA STRENGTH [Concomitant]
     Indication: PAIN
     Route: 065
  5. LEVOTHYROXINE [Concomitant]
     Route: 065
  6. DIGOXIN [Concomitant]
     Route: 065
  7. METOPROLOL [Concomitant]
     Route: 065
  8. FAMOTIDINE [Concomitant]
     Route: 065
  9. INFLUENZA VACCINE [Concomitant]
     Route: 065
     Dates: start: 20131017

REACTIONS (9)
  - Atrial thrombosis [Fatal]
  - Aortic thrombosis [Fatal]
  - Mediastinal haematoma [Unknown]
  - Extravasation [Unknown]
  - Atrial fibrillation [Unknown]
  - Cardiac tamponade [Unknown]
  - Haemorrhage [Unknown]
  - Blood pressure decreased [Unknown]
  - Electrocardiogram change [Unknown]
